FAERS Safety Report 18581184 (Version 12)
Quarter: 2021Q4

REPORT INFORMATION
  Report Type: Report from Study
  Country: US (occurrence: US)
  Receive Date: 20201204
  Receipt Date: 20211029
  Transmission Date: 20220303
  Serious: Yes (Hospitalization, Other)
  Sender: FDA-Public Use
  Company Number: US-TEVA-2020-US-1854880

PATIENT
  Age: 48 Year
  Sex: Female

DRUGS (5)
  1. TREPROSTINIL [Suspect]
     Active Substance: TREPROSTINIL
     Indication: Pulmonary arterial hypertension
     Dosage: DOSE: 25 NG/KG/MIN, CONTINUOUS
     Route: 042
     Dates: start: 20201028
  2. TREPROSTINIL [Suspect]
     Active Substance: TREPROSTINIL
     Dosage: DOSE: 15NG/KG/MIN
     Route: 042
     Dates: start: 20201110
  3. TREPROSTINIL [Suspect]
     Active Substance: TREPROSTINIL
     Dosage: DOSE: 19 NG/KG/MIN
     Route: 042
     Dates: start: 20201111
  4. TREPROSTINIL [Suspect]
     Active Substance: TREPROSTINIL
     Dosage: DOSE: 18NG/KG/MIN
     Route: 058
     Dates: start: 20201225
  5. TREPROSTINIL [Suspect]
     Active Substance: TREPROSTINIL
     Dosage: DOSE: 18NG/KG/MIN
     Route: 042
     Dates: start: 20201208

REACTIONS (10)
  - Hypokalaemia [Unknown]
  - Swelling face [Unknown]
  - Adverse event [Unknown]
  - Pain in extremity [Not Recovered/Not Resolved]
  - Erythema [Unknown]
  - Insomnia [Unknown]
  - Incorrect dose administered [Unknown]
  - Blood pressure increased [Unknown]
  - Oedema [Unknown]
  - Gastrointestinal disorder [Unknown]

NARRATIVE: CASE EVENT DATE: 20201101
